FAERS Safety Report 9482764 (Version 2)
Quarter: 2014Q1

REPORT INFORMATION
  Report Type: Report from Study
  Country: CA (occurrence: CA)
  Receive Date: 20130828
  Receipt Date: 20140122
  Transmission Date: 20141002
  Serious: Yes (Hospitalization)
  Sender: FDA-Public Use
  Company Number: CA-JNJFOC-20130809971

PATIENT
  Sex: Female
  Weight: 57 kg

DRUGS (4)
  1. REMICADE [Suspect]
     Indication: CROHN^S DISEASE
     Route: 042
     Dates: start: 20121203
  2. REMICADE [Suspect]
     Indication: CROHN^S DISEASE
     Route: 042
     Dates: start: 201308
  3. SALOFALK [Concomitant]
     Route: 048
  4. PREDNISONE [Concomitant]
     Dosage: 4 CO DIE
     Route: 048

REACTIONS (2)
  - Osteoarthropathy [Unknown]
  - Acute pulmonary oedema [Unknown]
